FAERS Safety Report 5220088-8 (Version None)
Quarter: 2006Q4

REPORT INFORMATION
  Report Type: 
  Country: None (occurrence: None)
  Receive Date: 20061121
  Receipt Date: 20060925
  Transmission Date: 20070319
  Serious: No
  Sender: FDA-Public Use
  Company Number: TPA2006A01657

PATIENT
  Age: 64 Year
  Sex: Female
  Weight: 68.0396 kg

DRUGS (4)
  1. ROZEREM [Suspect]
     Indication: INSOMNIA
     Dosage: 8 MG, HS, PER ORAL
     Route: 048
     Dates: start: 20060901, end: 20060925
  2. FEMHRT [Concomitant]
  3. ACIPHEX [Concomitant]
  4. MULTI-VITAMINS [Concomitant]

REACTIONS (1)
  - POOR QUALITY SLEEP [None]
